FAERS Safety Report 8619626-4 (Version None)
Quarter: 2012Q3

REPORT INFORMATION
  Report Type: 
  Country: None (occurrence: None)
  Receive Date: 20120810
  Receipt Date: 20120802
  Transmission Date: 20120928
  Serious: Yes (Other)
  Sender: FDA-Public Use
  Company Number: 2012TP000268

PATIENT
  Age: 76 Year
  Sex: Male

DRUGS (8)
  1. MEGESTROL ACETATE [Concomitant]
  2. LEVOTHROID [Concomitant]
  3. CLONIDINE [Concomitant]
  4. NEURONTIN [Concomitant]
  5. METHADONE HCL [Concomitant]
  6. LIDODERM [Suspect]
     Indication: POST HERPETIC NEURALGIA
     Dosage: 1 PATCH; 1X; TOP
     Route: 061
  7. LASIX [Concomitant]
  8. VITAMIN D /00318501/ [Concomitant]

REACTIONS (6)
  - DIALYSIS [None]
  - CONDITION AGGRAVATED [None]
  - POST HERPETIC NEURALGIA [None]
  - HIP FRACTURE [None]
  - RENAL FAILURE [None]
  - WRIST FRACTURE [None]
